FAERS Safety Report 6978354-1 (Version None)
Quarter: 2010Q3

REPORT INFORMATION
  Report Type: 
  Country: None (occurrence: None)
  Receive Date: 20100913
  Receipt Date: 20100907
  Transmission Date: 20110219
  Serious: Yes (Hospitalization)
  Sender: FDA-Public Use
  Company Number: PHHO2010US02902

PATIENT
  Sex: Female
  Weight: 54.875 kg

DRUGS (11)
  1. AFINITOR [Suspect]
     Indication: PANCREATIC CARCINOMA METASTATIC
     Dosage: 10 MG / DAILY
     Route: 048
     Dates: start: 20100122
  2. TEMOZOLOMIDE [Concomitant]
     Indication: PANCREATIC CARCINOMA METASTATIC
     Dosage: 150MG/M2
     Route: 048
     Dates: start: 20100122
  3. DIOVAN [Concomitant]
  4. FLOVENT [Concomitant]
  5. PROVENTIL [Concomitant]
  6. ALLEGRA [Concomitant]
  7. VITAMIN D [Concomitant]
  8. ASPIRIN [Concomitant]
  9. MULTI-VITAMINS [Concomitant]
  10. PRILOSEC [Concomitant]
  11. BACTRIM [Concomitant]

REACTIONS (7)
  - ABASIA [None]
  - DYSPNOEA EXERTIONAL [None]
  - FATIGUE [None]
  - NASAL CONGESTION [None]
  - PRODUCTIVE COUGH [None]
  - PULMONARY CONGESTION [None]
  - RESPIRATORY TRACT INFECTION [None]
